FAERS Safety Report 21379816 (Version 1)
Quarter: 2022Q3

REPORT INFORMATION
  Report Type: Spontaneous
  Country: US (occurrence: US)
  Receive Date: 20220927
  Receipt Date: 20220927
  Transmission Date: 20221027
  Serious: Yes (Hospitalization, Other)
  Sender: FDA-Public Use
  Company Number: US-TARO PHARMACEUTICALS USA INC.-2022TAR01140

PATIENT

DRUGS (4)
  1. PHENYTOIN [Suspect]
     Active Substance: PHENYTOIN
     Indication: Seizure
     Dosage: 125 MG, BID
     Route: 048
     Dates: start: 2015
  2. PHENYTOIN [Suspect]
     Active Substance: PHENYTOIN
     Dosage: 125 MG, BID
     Route: 048
     Dates: start: 202208, end: 20220910
  3. PHENYTOIN [Suspect]
     Active Substance: PHENYTOIN
     Dosage: NEW BOTTLE GIVEN PRIOR TO DISCHARGE FROM HOSPITAL
     Route: 048
  4. ONFI [Concomitant]
     Active Substance: CLOBAZAM
     Indication: Product used for unknown indication
     Dosage: 10 MG, BID
     Route: 048

REACTIONS (3)
  - Femur fracture [Not Recovered/Not Resolved]
  - Drug ineffective [Unknown]
  - Drug level decreased [Recovering/Resolving]

NARRATIVE: CASE EVENT DATE: 20220823
